FAERS Safety Report 8367672-0 (Version None)
Quarter: 2012Q2

REPORT INFORMATION
  Report Type: 
  Country: None (occurrence: None)
  Receive Date: 20120517
  Receipt Date: 20120510
  Transmission Date: 20120825
  Serious: Yes (Hospitalization)
  Sender: FDA-Public Use
  Company Number: US-GLAXOSMITHKLINE-A0879514A

PATIENT
  Age: 31 Year
  Sex: Female
  Weight: 117.7 kg

DRUGS (1)
  1. AVANDIA [Suspect]
     Indication: TYPE 1 DIABETES MELLITUS
     Dosage: 8MG PER DAY
     Route: 048

REACTIONS (4)
  - OEDEMA [None]
  - MYOCARDIAL INFARCTION [None]
  - CHEST PAIN [None]
  - DYSPNOEA [None]
